FAERS Safety Report 14955683 (Version 1)
Quarter: 2018Q2

REPORT INFORMATION
  Report Type: Spontaneous
  Country: US (occurrence: US)
  Receive Date: 20180531
  Receipt Date: 20180531
  Transmission Date: 20180711
  Serious: No
  Sender: FDA-Public Use
  Company Number: US-AUROBINDO-AUR-APL-2017-43902

PATIENT
  Sex: Female

DRUGS (1)
  1. ONDANSETRON ORALLY DISINTEGRATING TABLETS USP 4 MG [Suspect]
     Active Substance: ONDANSETRON
     Indication: NAUSEA
     Dosage: 4 MG, DAILY
     Route: 048

REACTIONS (3)
  - Fatigue [Recovered/Resolved]
  - Nausea [Recovered/Resolved]
  - Tongue discomfort [Recovered/Resolved]
